FAERS Safety Report 23454948 (Version 1)
Quarter: 2024Q1

REPORT INFORMATION
  Report Type: Spontaneous
  Country: JP (occurrence: JP)
  Receive Date: 20240130
  Receipt Date: 20240130
  Transmission Date: 20240409
  Serious: Yes (Hospitalization, Other)
  Sender: FDA-Public Use
  Company Number: JP-Accord-399921

PATIENT
  Age: 75 Year
  Sex: Male

DRUGS (17)
  1. MYCOPHENOLATE MOFETIL [Suspect]
     Active Substance: MYCOPHENOLATE MOFETIL
     Indication: Drug-induced liver injury
  2. NIVOLUMAB [Concomitant]
     Active Substance: NIVOLUMAB
     Indication: Malignant melanoma stage IV
  3. AMLODIPINE [Concomitant]
     Active Substance: AMLODIPINE BESYLATE
  4. CANDESARTAN [Concomitant]
     Active Substance: CANDESARTAN
  5. HYDROCHLOROTHIAZIDE [Concomitant]
     Active Substance: HYDROCHLOROTHIAZIDE
  6. TRAMADOL [Concomitant]
     Active Substance: TRAMADOL\TRAMADOL HYDROCHLORIDE
  7. ACETAMINOPHEN [Concomitant]
     Active Substance: ACETAMINOPHEN
  8. METHYLPREDNISOLONE [Concomitant]
     Active Substance: METHYLPREDNISOLONE
  9. SULFAMETHOXAZOLE\TRIMETHOPRIM [Concomitant]
     Active Substance: SULFAMETHOXAZOLE\TRIMETHOPRIM
     Indication: Opportunistic infection prophylaxis
     Dosage: 4 G P.O. DAILY
     Route: 048
  10. FLUCONAZOLE [Concomitant]
     Active Substance: FLUCONAZOLE
     Indication: Opportunistic infection prophylaxis
     Dosage: 400  MG P.O. DAILY
     Route: 048
  11. PREDNISOLONE [Concomitant]
     Active Substance: PREDNISOLONE
     Indication: Drug-induced liver injury
     Dosage: GRADUALLY REDUCED
  12. PREDNISOLONE [Concomitant]
     Active Substance: PREDNISOLONE
     Indication: Drug-induced liver injury
     Dosage: REDUCED
  13. PREDNISOLONE [Concomitant]
     Active Substance: PREDNISOLONE
     Indication: Drug-induced liver injury
     Dosage: GRADUALLY REDUCED
     Route: 042
  14. PREDNISOLONE [Concomitant]
     Active Substance: PREDNISOLONE
     Indication: Drug-induced liver injury
     Dosage: INCREASED ON DAY 44
  15. PREDNISOLONE [Concomitant]
     Active Substance: PREDNISOLONE
     Indication: Drug-induced liver injury
     Dosage: REDUCED ON DAY 12
  16. PREDNISOLONE [Concomitant]
     Active Substance: PREDNISOLONE
     Indication: Drug-induced liver injury
     Dosage: GRADUALLY REDUCED
  17. PREDNISOLONE [Concomitant]
     Active Substance: PREDNISOLONE
     Indication: Drug-induced liver injury
     Dosage: INCREASED ON DAY 41

REACTIONS (1)
  - Lymphopenia [Unknown]
